FAERS Safety Report 20733108 (Version 1)
Quarter: 2022Q2

REPORT INFORMATION
  Report Type: Spontaneous
  Country: RO (occurrence: RO)
  Receive Date: 20220421
  Receipt Date: 20220421
  Transmission Date: 20220720
  Serious: Yes (Death, Other)
  Sender: FDA-Public Use
  Company Number: RO-BRISTOL-MYERS SQUIBB COMPANY-2022-022192

PATIENT
  Age: 57 Year
  Sex: Male

DRUGS (7)
  1. POMALIDOMIDE [Suspect]
     Active Substance: POMALIDOMIDE
     Indication: Plasma cell myeloma
     Dosage: DOSE : 4 MG1CP/DAY;     FREQ : 1CP/DAY, DAYS1-21
     Route: 048
     Dates: start: 202004
  2. DEXAMETHASONE [Concomitant]
     Active Substance: DEXAMETHASONE
     Indication: Product used for unknown indication
     Dosage: 40 MG/DAY, DAY 1,8,15 AND 22
  3. APIXABAN [Concomitant]
     Active Substance: APIXABAN
     Indication: Product used for unknown indication
     Dosage: 2,5 MG AT 12 HOURS
  4. APIXABAN [Concomitant]
     Active Substance: APIXABAN
     Dosage: 2,5 MG AT 12 HOURS
  5. ZOLEDRONIC ACID [Concomitant]
     Active Substance: ZOLEDRONIC ACID
     Indication: Product used for unknown indication
     Route: 042
  6. BORTEZOMIB [Concomitant]
     Active Substance: BORTEZOMIB
     Indication: Product used for unknown indication
     Dosage: 1.3MG/MP, DAYS 1,4,8,11
  7. ACYCLOVIR [Concomitant]
     Active Substance: ACYCLOVIR
     Indication: Herpes zoster

REACTIONS (6)
  - Constipation [Unknown]
  - Asthenia [Unknown]
  - Cataract [Unknown]
  - Insomnia [Unknown]
  - Polyneuropathy [Unknown]
  - Neurotoxicity [Fatal]

NARRATIVE: CASE EVENT DATE: 20211101
